FAERS Safety Report 4653311-9 (Version None)
Quarter: 2005Q2

REPORT INFORMATION
  Report Type: 
  Country: None (occurrence: None)
  Receive Date: 20050505
  Receipt Date: 20050426
  Transmission Date: 20051028
  Serious: Yes (Other)
  Sender: FDA-Public Use
  Company Number: AU-BRISTOL-MYERS SQUIBB COMPANY-12945846

PATIENT
  Age: 30 Year
  Sex: Female

DRUGS (1)
  1. AVAPRO-HCT [Suspect]
     Dosage: DOSAGE FORM = 150 MG / 12.5 MG
     Route: 048
     Dates: start: 20050401

REACTIONS (1)
  - CIRCULATORY COLLAPSE [None]
